FAERS Safety Report 17969222 (Version 1)
Quarter: 2020Q3

REPORT INFORMATION
  Report Type: Spontaneous
  Country: US (occurrence: US)
  Receive Date: 20200701
  Receipt Date: 20200701
  Transmission Date: 20201103
  Serious: No
  Sender: FDA-Public Use
  Company Number: US-PFM-2020-03297

PATIENT
  Sex: Male
  Weight: 14.6 kg

DRUGS (7)
  1. ACLOVATE [Concomitant]
     Active Substance: ALCLOMETASONE DIPROPIONATE
     Indication: ECZEMA
     Route: 065
  2. PROTOPIC [Concomitant]
     Active Substance: TACROLIMUS
     Indication: ECZEMA
  3. HEMANGEOL [Suspect]
     Active Substance: PROPRANOLOL HYDROCHLORIDE
     Dosage: 5 ML, QD (1/DAY) IN THE MORNING
     Route: 065
  4. HEMANGEOL [Suspect]
     Active Substance: PROPRANOLOL HYDROCHLORIDE
     Dosage: UNK
     Dates: start: 20190703
  5. HEMANGEOL [Suspect]
     Active Substance: PROPRANOLOL HYDROCHLORIDE
     Dosage: 5.2 ML, QD (1/DAY) IN THE MORNING
     Route: 065
  6. DERMA SMOOTHE [Concomitant]
     Indication: ECZEMA
     Route: 048
  7. HEMANGEOL [Suspect]
     Active Substance: PROPRANOLOL HYDROCHLORIDE
     Indication: INFANTILE HAEMANGIOMA
     Dosage: UNK
     Dates: start: 20170517

REACTIONS (4)
  - Product use issue [Unknown]
  - Off label use [Unknown]
  - Product administered to patient of inappropriate age [Unknown]
  - Inappropriate schedule of product administration [Unknown]
